FAERS Safety Report 6067293-9 (Version None)
Quarter: 2009Q1

REPORT INFORMATION
  Report Type: 
  Country: None (occurrence: None)
  Receive Date: 20090205
  Receipt Date: 20090129
  Transmission Date: 20090719
  Serious: Yes (Hospitalization)
  Sender: FDA-Public Use
  Company Number: IN-NOVOPROD-283624

PATIENT
  Age: 75 Year
  Sex: Male

DRUGS (1)
  1. HUMAN MIXTARD 30 [Suspect]
     Indication: DRUG USE FOR UNKNOWN INDICATION
     Dosage: 1 IU, QD

REACTIONS (1)
  - INJECTION SITE ABSCESS [None]
